FAERS Safety Report 6581483-8 (Version None)
Quarter: 2010Q1

REPORT INFORMATION
  Report Type: 
  Country: None (occurrence: None)
  Receive Date: 20100215
  Receipt Date: 20100201
  Transmission Date: 20100710
  Serious: Yes (Death)
  Sender: FDA-Public Use
  Company Number: B0619109A

PATIENT
  Sex: Female

DRUGS (6)
  1. SERETIDE [Suspect]
     Indication: ASTHMA
     Route: 055
     Dates: start: 20071018, end: 20091102
  2. ACETYLSALICYLZUUR [Concomitant]
     Dosage: 80MG PER DAY
     Route: 048
  3. ISORDIL [Concomitant]
     Dosage: 5MG PER DAY
     Route: 048
  4. SPIRIVA [Concomitant]
     Dosage: 5MCG PER DAY
     Route: 055
  5. THYRAX [Concomitant]
     Dosage: 100MCG PER DAY
     Route: 048
  6. BETAMETHASON [Concomitant]
     Dosage: .001MGK UNKNOWN
     Route: 065

REACTIONS (2)
  - DEATH [None]
  - PRURITUS [None]
